FAERS Safety Report 7910829-0 (Version None)
Quarter: 2011Q4

REPORT INFORMATION
  Report Type: 
  Country: None (occurrence: None)
  Receive Date: 20111114
  Receipt Date: 20111104
  Transmission Date: 20120403
  Serious: Yes (Hospitalization)
  Sender: FDA-Public Use
  Company Number: US-BIOGENIDEC-2011BI018893

PATIENT
  Age: 51 Year
  Sex: Female

DRUGS (2)
  1. TYSABRI [Suspect]
     Indication: MULTIPLE SCLEROSIS
     Route: 042
     Dates: start: 20080122, end: 20110406
  2. TYSABRI [Suspect]
     Route: 042
     Dates: start: 20110823

REACTIONS (6)
  - ANIMAL BITE [None]
  - ARTERIAL INJURY [None]
  - SYMPATHETIC NERVE INJURY [None]
  - MOBILITY DECREASED [None]
  - INFECTION [None]
  - LARYNGEAL INJURY [None]
